FAERS Safety Report 20317144 (Version 1)
Quarter: 2022Q1

REPORT INFORMATION
  Report Type: Spontaneous
  Country: GB (occurrence: GB)
  Receive Date: 20220110
  Receipt Date: 20220110
  Transmission Date: 20220423
  Serious: Yes (Hospitalization, Other)
  Sender: FDA-Public Use
  Company Number: GB-RP-022072

PATIENT
  Age: 65 Year
  Sex: Female

DRUGS (1)
  1. ACYCLOVIR [Suspect]
     Active Substance: ACYCLOVIR
     Indication: Oral herpes
     Dosage: 800 MG (ORAL ACICLOVIR 800 MG FIVE TIMESDAILY FOR SUSPECTED HERPES SIMPLEX VIRUS (HSV) STOMATITIS)
     Route: 065

REACTIONS (6)
  - Neurotoxicity [Recovering/Resolving]
  - Toxicity to various agents [Unknown]
  - Aphasia [Recovering/Resolving]
  - Confusional state [Recovered/Resolved]
  - Hallucination, visual [Recovering/Resolving]
  - Overdose [Recovering/Resolving]
